FAERS Safety Report 4946696-7 (Version None)
Quarter: 2006Q1

REPORT INFORMATION
  Report Type: 
  Country: None (occurrence: None)
  Receive Date: 20060317
  Receipt Date: 20050829
  Transmission Date: 20060701
  Serious: Yes (Death, Hospitalization)
  Sender: FDA-Public Use
  Company Number: US-MERCK-0508USA04701

PATIENT
  Sex: Male
  Weight: 91 kg

DRUGS (2)
  1. VIOXX [Suspect]
     Indication: ARTHRALGIA
     Route: 048
     Dates: start: 20000201, end: 20040528
  2. VIOXX [Suspect]
     Route: 048
     Dates: start: 20000201, end: 20040528

REACTIONS (4)
  - CAROTID ARTERY STENOSIS [None]
  - DYSPNOEA [None]
  - MYOCARDIAL INFARCTION [None]
  - STRIDOR [None]
